FAERS Safety Report 12675750 (Version 1)
Quarter: 2016Q3

REPORT INFORMATION
  Report Type: Spontaneous
  Country: US (occurrence: US)
  Receive Date: 20160823
  Receipt Date: 20160823
  Transmission Date: 20161109
  Serious: No
  Sender: FDA-Public Use
  Company Number: US-JAZZ-2016-US-006635

PATIENT

DRUGS (14)
  1. XYREM [Suspect]
     Active Substance: SODIUM OXYBATE
     Indication: NARCOLEPSY
     Dosage: 2.25 G, BID
     Route: 048
     Dates: start: 20160406
  2. SINGULAIR [Concomitant]
     Active Substance: MONTELUKAST SODIUM
  3. VALTREX [Concomitant]
     Active Substance: VALACYCLOVIR HYDROCHLORIDE
     Indication: HERPES VIRUS INFECTION
  4. IRON [Concomitant]
     Active Substance: IRON
  5. OXCARBAZEPINE. [Concomitant]
     Active Substance: OXCARBAZEPINE
     Indication: DEPRESSION
  6. GABAPENTIN. [Concomitant]
     Active Substance: GABAPENTIN
     Indication: PAIN
  7. VALIUM [Concomitant]
     Active Substance: DIAZEPAM
  8. VITAMIN D [Concomitant]
     Active Substance: CHOLECALCIFEROL
  9. NORCO [Concomitant]
     Active Substance: ACETAMINOPHEN\HYDROCODONE BITARTRATE
  10. LOTRIMIN [Concomitant]
     Active Substance: CLOTRIMAZOLE
     Indication: HAEMORRHOIDS
  11. DOXEPIN [Concomitant]
     Active Substance: DOXEPIN
  12. SOMA [Concomitant]
     Active Substance: CARISOPRODOL
  13. ANUSOL NOS [Concomitant]
     Active Substance: BALSAM PERU\BENZYL BENZOATE\BISMUTH HYDROXIDE\BISMUTH SUBGALLATE\HYDROCORTISONE ACETATE\ZINC OXIDE
  14. ATORVASTATIN [Concomitant]
     Active Substance: ATORVASTATIN

REACTIONS (1)
  - Wrong technique in product usage process [Unknown]

NARRATIVE: CASE EVENT DATE: 201604
